FAERS Safety Report 9828813 (Version 1)
Quarter: 2014Q1

REPORT INFORMATION
  Report Type: Spontaneous
  Country: US (occurrence: US)
  Receive Date: 20140118
  Receipt Date: 20140118
  Transmission Date: 20141002
  Serious: Yes (Death)
  Sender: FDA-Public Use
  Company Number: US-JNJFOC-20140109297

PATIENT
  Age: 44 Year
  Sex: Male

DRUGS (6)
  1. SALICYLATE [Suspect]
     Indication: SUICIDE ATTEMPT
     Route: 065
  2. AMLODIPINE [Suspect]
     Indication: SUICIDE ATTEMPT
     Route: 065
  3. ATENOLOL [Suspect]
     Indication: SUICIDE ATTEMPT
     Route: 065
  4. INSULIN [Suspect]
     Indication: SUICIDE ATTEMPT
     Route: 065
  5. PRAVASTATIN [Suspect]
     Indication: SUICIDE ATTEMPT
     Route: 065
  6. GEMFIBROZIL [Suspect]
     Indication: SUICIDE ATTEMPT
     Route: 065

REACTIONS (1)
  - Toxicity to various agents [Fatal]
